FAERS Safety Report 15932835 (Version 1)
Quarter: 2019Q1

REPORT INFORMATION
  Report Type: Spontaneous
  Country: ES (occurrence: ES)
  Receive Date: 20190207
  Receipt Date: 20190207
  Transmission Date: 20190417
  Serious: Yes (Other)
  Sender: FDA-Public Use
  Company Number: ES-009507513-1901ESP011782

PATIENT
  Sex: Male

DRUGS (3)
  1. LETERMOVIR [Suspect]
     Active Substance: LETERMOVIR
     Indication: PNEUMONIA CYTOMEGALOVIRAL
     Dosage: 240 MILLIGRAM, QD
     Route: 048
     Dates: start: 20190125
  2. CYCLOSPORINE. [Concomitant]
     Active Substance: CYCLOSPORINE
  3. LETERMOVIR [Suspect]
     Active Substance: LETERMOVIR
     Indication: CYTOMEGALOVIRUS VIRAEMIA

REACTIONS (2)
  - Product use issue [Unknown]
  - Acute kidney injury [Unknown]

NARRATIVE: CASE EVENT DATE: 201901
